FAERS Safety Report 6108043-7 (Version None)
Quarter: 2009Q1

REPORT INFORMATION
  Report Type: 
  Country: None (occurrence: None)
  Receive Date: 20090305
  Receipt Date: 20090305
  Transmission Date: 20090719
  Serious: Yes (Other)
  Sender: FDA-Public Use
  Company Number: None

PATIENT
  Age: 7 Year
  Sex: Male
  Weight: 22.2263 kg

DRUGS (2)
  1. METHYLIN [Suspect]
     Indication: ATTENTION DEFICIT/HYPERACTIVITY DISORDER
     Dosage: 10 MG. 2X A DAY PO
     Route: 048
     Dates: start: 20081001, end: 20090304
  2. METHYLIN [Suspect]
     Indication: ATTENTION DEFICIT/HYPERACTIVITY DISORDER
     Dosage: 5 MG. 1X A DAY PO
     Route: 048
     Dates: start: 20080301, end: 20090304

REACTIONS (1)
  - HYPOAESTHESIA [None]
